FAERS Safety Report 25070026 (Version 2)
Quarter: 2025Q2

REPORT INFORMATION
  Report Type: Spontaneous
  Country: JP (occurrence: JP)
  Receive Date: 20250312
  Receipt Date: 20250403
  Transmission Date: 20250717
  Serious: Yes (Death, Hospitalization)
  Sender: MERCK SHARP AND DOHME
  Company Number: JP-009507513-2255593

PATIENT
  Age: 76 Year
  Sex: Female

DRUGS (3)
  1. KEYTRUDA [Suspect]
     Active Substance: PEMBROLIZUMAB
     Indication: Triple negative breast cancer
     Route: 041
     Dates: start: 20241128, end: 2025
  2. KEYTRUDA [Suspect]
     Active Substance: PEMBROLIZUMAB
     Indication: Triple negative breast cancer
     Dosage: 3RD CYCLE
     Route: 041
     Dates: start: 202502
  3. PACLITAXEL [Concomitant]
     Active Substance: PACLITAXEL
     Route: 065
     Dates: end: 20250207

REACTIONS (1)
  - Interstitial lung disease [Fatal]

NARRATIVE: CASE EVENT DATE: 20250201
